FAERS Safety Report 22273572 (Version 1)
Quarter: 2023Q2

REPORT INFORMATION
  Report Type: Spontaneous
  Country: FR (occurrence: FR)
  Receive Date: 20230502
  Receipt Date: 20230502
  Transmission Date: 20230721
  Serious: Yes (Hospitalization, Other)
  Sender: FDA-Public Use
  Company Number: FR-AFSSAPS-AVCN2023000205

PATIENT
  Age: 21 Year
  Sex: Male

DRUGS (3)
  1. ACETAMINOPHEN [Suspect]
     Active Substance: ACETAMINOPHEN
     Indication: Product used for unknown indication
     Dosage: 4 GRAM
     Route: 048
     Dates: start: 20211022
  2. TRAMADOL [Suspect]
     Active Substance: TRAMADOL
     Indication: Product used for unknown indication
     Dosage: 1500 MILLIGRAM (ENVIRON 1500MG)(ABOUT 1500MG)
     Route: 048
     Dates: start: 20211022
  3. CANNABIS SATIVA SUBSP. INDICA TOP [Suspect]
     Active Substance: CANNABIS SATIVA SUBSP. INDICA TOP
     Indication: Product used for unknown indication
     Dosage: 10 JOINTS/J (10 SEALS/DAY)
     Dates: start: 2012

REACTIONS (6)
  - Suicide attempt [Recovered/Resolved]
  - Drug abuse [Not Recovered/Not Resolved]
  - Suicidal ideation [Recovering/Resolving]
  - Toxicity to various agents [Recovered/Resolved]
  - Anxiety [Recovering/Resolving]
  - Mydriasis [Recovered/Resolved]

NARRATIVE: CASE EVENT DATE: 20120101
